FAERS Safety Report 8732903 (Version 2)
Quarter: 2021Q1

REPORT INFORMATION
  Report Type: Report from Study
  Country: US (occurrence: US)
  Receive Date: 20120820
  Receipt Date: 20210127
  Transmission Date: 20210420
  Serious: Yes (Hospitalization)
  Sender: FDA-Public Use
  Company Number: US-PFIZER INC-2012197505

PATIENT
  Age: 67 Year
  Sex: Female
  Weight: 69 kg

DRUGS (14)
  1. DIOVAN [Concomitant]
     Active Substance: VALSARTAN
     Indication: HYPERTENSION
     Dosage: UNK
  2. FLEXERIL [Concomitant]
     Active Substance: CYCLOBENZAPRINE HYDROCHLORIDE
     Indication: BACK PAIN
     Dosage: UNK
  3. CATAPRES [Concomitant]
     Active Substance: CLONIDINE HYDROCHLORIDE
     Indication: HYPERTENSION
     Dosage: UNK
  4. METFORMIN [Concomitant]
     Active Substance: METFORMIN HYDROCHLORIDE
     Dosage: UNK
     Dates: end: 20120530
  5. LOPRESSOR [Concomitant]
     Active Substance: METOPROLOL TARTRATE
  6. ACETYLSALICYLIC ACID [Concomitant]
     Active Substance: ASPIRIN
  7. VITAMIN D [Concomitant]
     Active Substance: VITAMIN D NOS
     Indication: VITAMIN D DEFICIENCY
     Dosage: UNK
  8. CITALOPRAM [Concomitant]
     Active Substance: CITALOPRAM HYDROBROMIDE
     Indication: DEPRESSION
     Dosage: UNK
  9. OXYCONTIN [Concomitant]
     Active Substance: OXYCODONE HYDROCHLORIDE
     Indication: BACK PAIN
     Dosage: UNK
  10. OMEPRAZOLE. [Concomitant]
     Active Substance: OMEPRAZOLE
     Indication: GASTROOESOPHAGEAL REFLUX DISEASE
     Dosage: UNK
  11. AMLODIPINE BESILATE [Concomitant]
     Active Substance: AMLODIPINE BESYLATE
     Indication: HYPERTENSION
     Dosage: UNK
  12. LIPITOR [Suspect]
     Active Substance: ATORVASTATIN CALCIUM
     Indication: HYPERCHOLESTEROLAEMIA
     Dosage: UNK
  13. CODEINE SULFATE. [Concomitant]
     Active Substance: CODEINE SULFATE
     Indication: BACK PAIN
     Dosage: UNK
  14. LASIX [Concomitant]
     Active Substance: FUROSEMIDE
     Indication: HYPERTENSION
     Dosage: UNK

REACTIONS (2)
  - Hypoglycaemia [Recovered/Resolved]
  - Acute kidney injury [Recovered/Resolved]

NARRATIVE: CASE EVENT DATE: 20120529
